FAERS Safety Report 8817826 (Version 2)
Quarter: 2012Q4

REPORT INFORMATION
  Report Type: 
  Country: PT (occurrence: PT)
  Receive Date: 20121004
  Receipt Date: 20121017
  Transmission Date: 20130627
  Serious: Yes (Other)
  Sender: FDA-Public Use
  Company Number: PT-ROCHE-GNE293931

PATIENT
  Age: 70 Year
  Sex: Male

DRUGS (2)
  1. ACTILYSE [Suspect]
     Indication: ISCHAEMIC STROKE
     Dosage: UNK
     Route: 042
  2. ASPIRIN [Concomitant]

REACTIONS (2)
  - Motor dysfunction [Unknown]
  - Hypotension [Unknown]
